FAERS Safety Report 9303166 (Version 1)
Quarter: 2013Q2

REPORT INFORMATION
  Report Type: Spontaneous
  Country: US (occurrence: US)
  Receive Date: 20130522
  Receipt Date: 20130522
  Transmission Date: 20140414
  Serious: No
  Sender: FDA-Public Use
  Company Number: US-PFIZER INC-2013154736

PATIENT
  Age: 59 Year
  Sex: Male

DRUGS (5)
  1. LIPITOR [Suspect]
     Dosage: UNK
  2. AZITHROMYCIN [Suspect]
     Dosage: UNK
  3. CLINDAMYCIN HCL [Suspect]
     Dosage: UNK
  4. GABAPENTIN [Suspect]
     Dosage: UNK
  5. FLEXERIL [Suspect]
     Dosage: UNK

REACTIONS (1)
  - Drug hypersensitivity [Unknown]
